FAERS Safety Report 6835889-X (Version None)
Quarter: 2010Q2

REPORT INFORMATION
  Report Type: 
  Country: None (occurrence: None)
  Receive Date: 20100520
  Receipt Date: 20090521
  Transmission Date: 20101027
  Serious: Yes (Other)
  Sender: FDA-Public Use
  Company Number: 2009217708

PATIENT
  Age: 55 Year
  Sex: Female
  Weight: 59 kg

DRUGS (9)
  1. PROVERA [Suspect]
     Indication: HORMONE REPLACEMENT THERAPY
     Dosage: 2.5 MG, ORAL ; 5 MG, ORAL ; 10 MG, ORAL
     Route: 048
     Dates: start: 19950701, end: 19950901
  2. PROVERA [Suspect]
     Indication: HORMONE REPLACEMENT THERAPY
     Dosage: 2.5 MG, ORAL ; 5 MG, ORAL ; 10 MG, ORAL
     Route: 048
     Dates: start: 19950901, end: 19960101
  3. PROVERA [Suspect]
     Indication: HORMONE REPLACEMENT THERAPY
     Dosage: 2.5 MG, ORAL ; 5 MG, ORAL ; 10 MG, ORAL
     Route: 048
     Dates: start: 19940401, end: 19970101
  4. PREMARIN [Suspect]
     Indication: HORMONE REPLACEMENT THERAPY
     Dosage: 0.625 MG
     Dates: start: 19940401, end: 20040301
  5. PREMPRO [Suspect]
     Indication: HORMONE REPLACEMENT THERAPY
     Dosage: 0.625/2.5MG
     Dates: start: 19970401, end: 20010501
  6. FEMHRT [Suspect]
     Indication: HORMONE REPLACEMENT THERAPY
     Dosage: 1MG/5MCG
     Dates: start: 20000701, end: 20010101
  7. MIRALAX [Concomitant]
  8. AMITRIPTYLINE HYDROCHLORIDE [Concomitant]
  9. LOVASTATIN [Concomitant]

REACTIONS (1)
  - BREAST CANCER FEMALE [None]
